FAERS Safety Report 6003675-9 (Version None)
Quarter: 2008Q4

REPORT INFORMATION
  Report Type: 
  Country: None (occurrence: None)
  Receive Date: 20081216
  Receipt Date: 20080708
  Transmission Date: 20090506
  Serious: No
  Sender: FDA-Public Use
  Company Number: US-AMGEN-KDL293356

PATIENT
  Sex: Female

DRUGS (7)
  1. ARANESP [Suspect]
     Indication: ANAEMIA OF MALIGNANT DISEASE
  2. CARDIZEM [Concomitant]
  3. METOPROLOL [Concomitant]
  4. HYDROCHLOROTHIAZIDE [Concomitant]
  5. VALTREX [Concomitant]
  6. ZOFRAN [Concomitant]
  7. REGLAN [Concomitant]

REACTIONS (3)
  - CYSTITIS [None]
  - FLUSHING [None]
  - PYREXIA [None]
